FAERS Safety Report 20684105 (Version 4)
Quarter: 2022Q3

REPORT INFORMATION
  Report Type: Spontaneous
  Country: US (occurrence: US)
  Receive Date: 20220407
  Receipt Date: 20220823
  Transmission Date: 20221027
  Serious: Yes (Hospitalization, Other)
  Sender: FDA-Public Use
  Company Number: US-PFIZER INC-202200513318

PATIENT
  Age: 67 Year
  Sex: Female

DRUGS (1)
  1. IBRANCE [Suspect]
     Active Substance: PALBOCICLIB
     Dosage: 100 MG
     Dates: start: 20220311

REACTIONS (9)
  - Pneumonia [Unknown]
  - White blood cell count decreased [Unknown]
  - Chest pain [Unknown]
  - Cough [Unknown]
  - Pleural effusion [Unknown]
  - Fatigue [Not Recovered/Not Resolved]
  - Peripheral swelling [Unknown]
  - Skin discolouration [Unknown]
  - Pain [Not Recovered/Not Resolved]
